FAERS Safety Report 7385418-X (Version None)
Quarter: 2011Q1

REPORT INFORMATION
  Report Type: 
  Country: None (occurrence: None)
  Receive Date: 20110330
  Receipt Date: 20110319
  Transmission Date: 20110831
  Serious: Yes (Other)
  Sender: FDA-Public Use
  Company Number: IT-BAXTER-2011BH008229

PATIENT

DRUGS (13)
  1. METHOTREXATE [Suspect]
     Route: 037
  2. CYTARABINE [Suspect]
     Route: 037
  3. TENIPOSIDE [Suspect]
     Indication: B-CELL TYPE ACUTE LEUKAEMIA
     Route: 042
  4. DOXORUBICIN [Suspect]
     Indication: B-CELL TYPE ACUTE LEUKAEMIA
     Route: 042
  5. IFOSFAMIDE [Suspect]
     Indication: B-CELL TYPE ACUTE LEUKAEMIA
     Route: 042
  6. METHOTREXATE [Suspect]
     Indication: B-CELL TYPE ACUTE LEUKAEMIA
     Route: 042
  7. DEXAMETHASONE [Suspect]
     Indication: B-CELL TYPE ACUTE LEUKAEMIA
     Route: 048
  8. LEVOFOLINIC ACID [Suspect]
     Indication: B-CELL TYPE ACUTE LEUKAEMIA
     Route: 042
  9. PREDNISONE [Suspect]
     Indication: B-CELL TYPE ACUTE LEUKAEMIA
     Route: 048
  10. CYTARABINE [Suspect]
     Indication: B-CELL TYPE ACUTE LEUKAEMIA
     Route: 042
  11. PREDNISOLONE [Suspect]
     Indication: B-CELL TYPE ACUTE LEUKAEMIA
     Route: 037
  12. VINCRISTINE [Suspect]
     Indication: B-CELL TYPE ACUTE LEUKAEMIA
     Route: 042
  13. CYCLOPHOSPHAMIDE [Suspect]
     Indication: B-CELL TYPE ACUTE LEUKAEMIA
     Route: 042

REACTIONS (1)
  - SEPSIS [None]
